FAERS Safety Report 9807991 (Version 1)
Quarter: 2014Q1

REPORT INFORMATION
  Report Type: Spontaneous
  Country: FR (occurrence: FR)
  Receive Date: 20140110
  Receipt Date: 20140110
  Transmission Date: 20141002
  Serious: Yes (Other)
  Sender: FDA-Public Use
  Company Number: FR-JNJFOC-20140101312

PATIENT
  Age: 61 Year
  Sex: Female

DRUGS (17)
  1. RISPERDAL [Suspect]
     Indication: DEPRESSION
     Route: 048
  2. RISPERDAL [Suspect]
     Indication: DEPRESSION
     Dosage: 1 MG IN THE EVENING
     Route: 048
  3. RISPERDAL [Suspect]
     Indication: DEPRESSION
     Route: 048
     Dates: start: 201308
  4. RISPERDAL [Suspect]
     Indication: DEPRESSION
     Route: 048
     Dates: start: 201210, end: 2013
  5. ZYPREXA [Suspect]
     Indication: PRODUCT USED FOR UNKNOWN INDICATION
     Route: 065
  6. ZYPREXA [Suspect]
     Indication: PRODUCT USED FOR UNKNOWN INDICATION
     Route: 065
  7. ATHYMIL [Suspect]
     Indication: PRODUCT USED FOR UNKNOWN INDICATION
     Route: 065
  8. PROCORALAN [Concomitant]
     Route: 065
     Dates: end: 20131116
  9. SEROPLEX [Concomitant]
     Route: 065
  10. SEROPLEX [Concomitant]
     Route: 065
  11. SERESTA [Concomitant]
     Route: 065
  12. SERESTA [Concomitant]
     Route: 065
  13. IMOVANE [Concomitant]
     Route: 065
  14. IMOVANE [Concomitant]
     Route: 065
  15. HEMIGOXINE NATIVELLE [Concomitant]
     Route: 065
  16. NORSET [Concomitant]
     Route: 065
  17. TRILEPTAL [Concomitant]
     Route: 065

REACTIONS (3)
  - Rhabdomyolysis [Recovered/Resolved]
  - Hepatitis [Recovered/Resolved]
  - Cogwheel rigidity [Unknown]
